FAERS Safety Report 8490112-8 (Version None)
Quarter: 2012Q3

REPORT INFORMATION
  Report Type: 
  Country: None (occurrence: None)
  Receive Date: 20120705
  Receipt Date: 20120628
  Transmission Date: 20120928
  Serious: Yes (Hospitalization)
  Sender: FDA-Public Use
  Company Number: CH-JNJFOC-20120614552

PATIENT
  Age: 95 Year
  Sex: Female
  Weight: 55 kg

DRUGS (5)
  1. ASPIRIN [Suspect]
     Indication: PRODUCT USED FOR UNKNOWN INDICATION
     Route: 048
     Dates: end: 20120101
  2. XARELTO [Suspect]
     Indication: THROMBOSIS PROPHYLAXIS
     Route: 048
     Dates: start: 20120326, end: 20120402
  3. XARELTO [Suspect]
     Indication: ORTHOPEDIC PROCEDURE
     Route: 048
     Dates: start: 20120326, end: 20120402
  4. ENOXAPARIN SODIUM [Suspect]
     Indication: PROPHYLAXIS
     Route: 058
     Dates: start: 20120403, end: 20120412
  5. ACETAMINOPHEN [Concomitant]
     Route: 048

REACTIONS (3)
  - ANAEMIA [None]
  - CONFUSIONAL STATE [None]
  - MEDICATION ERROR [None]
